FAERS Safety Report 5707698-6 (Version None)
Quarter: 2008Q2

REPORT INFORMATION
  Report Type: 
  Country: None (occurrence: None)
  Receive Date: 20080416
  Receipt Date: 20080407
  Transmission Date: 20081010
  Serious: Yes (Death, Other)
  Sender: FDA-Public Use
  Company Number: NL-ALLERGAN-0804467US

PATIENT
  Sex: Female

DRUGS (2)
  1. DYSPORT [Suspect]
     Indication: SALIVARY HYPERSECRETION
     Dosage: 160 UNITS, SINGLE
     Route: 050
     Dates: start: 20050401, end: 20050401
  2. DYSPORT [Suspect]
     Indication: AMYOTROPHIC LATERAL SCLEROSIS

REACTIONS (7)
  - APHAGIA [None]
  - CRANIAL NERVE DISORDER [None]
  - DRUG INEFFECTIVE [None]
  - DYSARTHRIA [None]
  - LUNG DISORDER [None]
  - PALATAL DISORDER [None]
  - PARESIS [None]
